FAERS Safety Report 5166025-6 (Version None)
Quarter: 2006Q4

REPORT INFORMATION
  Report Type: 
  Country: None (occurrence: None)
  Receive Date: 20061128
  Receipt Date: 20061116
  Transmission Date: 20070319
  Serious: Yes (Other)
  Sender: FDA-Public Use
  Company Number: 430034N05USA

PATIENT
  Age: 56 Year
  Sex: Male
  Weight: 83.9 kg

DRUGS (5)
  1. NOVANTRONE [Suspect]
     Indication: MULTIPLE SCLEROSIS
     Dosage: 25 MG, 1 IN 3 MONTHS, INTRAVENOUS
     Route: 042
     Dates: start: 20020801, end: 20050505
  2. TIZANIDINE HCL [Concomitant]
  3. BACLOFEN [Concomitant]
  4. FLUOXETINE HYDROCHLORIDE [Concomitant]
  5. CYANOCOBALAMIN-TANIIN COMPLEX [Concomitant]

REACTIONS (1)
  - EJECTION FRACTION DECREASED [None]
